FAERS Safety Report 14028912 (Version 2)
Quarter: 2017Q4

REPORT INFORMATION
  Report Type: Spontaneous
  Country: US (occurrence: US)
  Receive Date: 20170930
  Receipt Date: 20171009
  Transmission Date: 20180321
  Serious: No
  Sender: FDA-Public Use
  Company Number: US-SA-2017SA095409

PATIENT
  Age: 46 Year
  Sex: Male

DRUGS (9)
  1. VITAMIN D3 [Concomitant]
     Active Substance: CHOLECALCIFEROL
  2. TAMSULOSIN HYDROCHLORIDE. [Concomitant]
     Active Substance: TAMSULOSIN HYDROCHLORIDE
  3. TOVIAZ [Concomitant]
     Active Substance: FESOTERODINE FUMARATE
  4. ADVIL [Concomitant]
     Active Substance: IBUPROFEN
  5. CALCIUM [Concomitant]
     Active Substance: CALCIUM
  6. AUBAGIO [Suspect]
     Active Substance: TERIFLUNOMIDE
     Indication: MULTIPLE SCLEROSIS
     Route: 048
  7. MYRBETRIQ [Concomitant]
     Active Substance: MIRABEGRON
  8. BACLOFEN. [Concomitant]
     Active Substance: BACLOFEN
  9. ALEVE [Concomitant]
     Active Substance: NAPROXEN SODIUM

REACTIONS (8)
  - Body temperature increased [Unknown]
  - Coordination abnormal [Unknown]
  - Condition aggravated [Unknown]
  - Alopecia [Unknown]
  - Balance disorder [Unknown]
  - Fatigue [Unknown]
  - Dysstasia [Unknown]
  - Influenza [Unknown]

NARRATIVE: CASE EVENT DATE: 2017
